FAERS Safety Report 6033303-8 (Version None)
Quarter: 2009Q1

REPORT INFORMATION
  Report Type: 
  Country: None (occurrence: None)
  Receive Date: 20090105
  Receipt Date: 20080701
  Transmission Date: 20090719
  Serious: Yes (Hospitalization)
  Sender: FDA-Public Use
  Company Number: US-001281

PATIENT
  Age: 53 Year
  Sex: Male
  Weight: 86 kg

DRUGS (8)
  1. MULTIHANCE [Suspect]
     Indication: CERVICOBRACHIAL SYNDROME
     Dosage: 15ML QD INTRAVENOUS (NOT OTHERWISE SPECIFIED)
     Route: 042
     Dates: start: 20080630, end: 20080630
  2. MULTIHANCE [Suspect]
     Indication: NUCLEAR MAGNETIC RESONANCE IMAGING
     Dosage: 15ML QD INTRAVENOUS (NOT OTHERWISE SPECIFIED)
     Route: 042
     Dates: start: 20080630, end: 20080630
  3. ASPIRIN [Concomitant]
  4. PLAVIX [Concomitant]
  5. LISINOPRIL [Concomitant]
  6. LIPITOR [Concomitant]
  7. METOPIRO (METYRAPONE) [Concomitant]
  8. VITAMIN D [Concomitant]

REACTIONS (1)
  - ANAPHYLACTIC SHOCK [None]
